FAERS Safety Report 12879791 (Version 1)
Quarter: 2016Q4

REPORT INFORMATION
  Report Type: Spontaneous
  Country: US (occurrence: US)
  Receive Date: 20161025
  Receipt Date: 20161025
  Transmission Date: 20170207
  Serious: No
  Sender: FDA-Public Use
  Company Number: US-BAYER-2016-204883

PATIENT
  Age: 47 Year
  Sex: Female
  Weight: 63.49 kg

DRUGS (3)
  1. PRED FORTE [Concomitant]
     Active Substance: PREDNISOLONE ACETATE
     Dosage: UNK
  2. ZEGERID OTC CAPSULES [Suspect]
     Active Substance: OMEPRAZOLE\SODIUM BICARBONATE
     Indication: GASTROINTESTINAL DISORDER
     Dosage: 1 DF, QD BEFORE BREAKFAST
     Route: 048
     Dates: start: 2016
  3. TRUSOPT [Concomitant]
     Active Substance: DORZOLAMIDE HYDROCHLORIDE

REACTIONS (1)
  - Expired product administered [Unknown]

NARRATIVE: CASE EVENT DATE: 20161021
